FAERS Safety Report 21855037 (Version 1)
Quarter: 2023Q1

REPORT INFORMATION
  Report Type: Spontaneous
  Country: US (occurrence: None)
  Receive Date: 20230112
  Receipt Date: 20230112
  Transmission Date: 20230417
  Serious: No
  Sender: FDA-Public Use
  Company Number: None

PATIENT
  Age: 56 Year
  Sex: Female
  Weight: 49.5 kg

DRUGS (7)
  1. AMOXICILLIN AND CLAVULANATE POTASSIUM [Suspect]
     Active Substance: AMOXICILLIN\CLAVULANATE POTASSIUM
     Indication: Sinusitis
     Dates: start: 20221113, end: 20221122
  2. GABAPENTIN [Concomitant]
     Active Substance: GABAPENTIN
  3. SUBOXONE [Concomitant]
     Active Substance: BUPRENORPHINE HYDROCHLORIDE\NALOXONE HYDROCHLORIDE
  4. VITAMINS [Concomitant]
     Active Substance: VITAMINS
  5. ZINC [Concomitant]
     Active Substance: ZINC
  6. MAGNESIUM [Concomitant]
     Active Substance: MAGNESIUM
  7. CALCIUM [Concomitant]
     Active Substance: CALCIUM

REACTIONS (5)
  - Product substitution issue [None]
  - Abdominal discomfort [None]
  - Pain [None]
  - Diarrhoea [None]
  - Drug ineffective [None]

NARRATIVE: CASE EVENT DATE: 20221113
